FAERS Safety Report 21544660 (Version 1)
Quarter: 2022Q4

REPORT INFORMATION
  Report Type: Spontaneous
  Country: US (occurrence: None)
  Receive Date: 20221101
  Receipt Date: 20221101
  Transmission Date: 20230113
  Serious: Yes (Other)
  Sender: FDA-Public Use
  Company Number: None

PATIENT
  Age: 72 Year
  Sex: Female
  Weight: 67.5 kg

DRUGS (14)
  1. OZEMPIC [Suspect]
     Active Substance: SEMAGLUTIDE
     Indication: Blood glucose increased
     Dosage: OTHER QUANTITY : .25 0.50;?OTHER FREQUENCY : ONCE A WEEK;?
     Route: 058
     Dates: start: 20220721, end: 20220901
  2. Levithyroxin [Concomitant]
  3. Omperzole [Concomitant]
  4. JANUVIA [Concomitant]
     Active Substance: SITAGLIPTIN PHOSPHATE
  5. METFORMIN [Concomitant]
     Active Substance: METFORMIN HYDROCHLORIDE
  6. GLIPIZIDE [Concomitant]
     Active Substance: GLIPIZIDE
  7. SINGULAIR [Concomitant]
     Active Substance: MONTELUKAST SODIUM
  8. COMPAZINE [Concomitant]
     Active Substance: PROCHLORPERAZINE MALEATE
  9. VITAMIN D NOS [Concomitant]
     Active Substance: VITAMIN D NOS
  10. Bcomples [Concomitant]
  11. MOV [Concomitant]
  12. CALCIUM [Concomitant]
     Active Substance: CALCIUM
  13. GARLIC [Concomitant]
     Active Substance: GARLIC
  14. ALLEGRA [Concomitant]
     Active Substance: FEXOFENADINE HYDROCHLORIDE

REACTIONS (2)
  - Abnormal dreams [None]
  - Rash [None]

NARRATIVE: CASE EVENT DATE: 20220722
